FAERS Safety Report 23634510 (Version 1)
Quarter: 2024Q1

REPORT INFORMATION
  Report Type: Report from Study
  Country: US (occurrence: US)
  Receive Date: 20240315
  Receipt Date: 20240315
  Transmission Date: 20240410
  Serious: Yes (Hospitalization)
  Sender: FDA-Public Use
  Company Number: US-ABBVIE-5676614

PATIENT
  Sex: Male

DRUGS (1)
  1. SKYRIZI [Suspect]
     Active Substance: RISANKIZUMAB-RZAA
     Indication: Psoriasis
     Route: 058
     Dates: start: 20230425

REACTIONS (4)
  - Nephrolithiasis [Recovering/Resolving]
  - Dry skin [Recovering/Resolving]
  - Cardiac disorder [Recovering/Resolving]
  - Gallbladder disorder [Recovering/Resolving]
